FAERS Safety Report 8427552-9 (Version None)
Quarter: 2012Q2

REPORT INFORMATION
  Report Type: 
  Country: None (occurrence: None)
  Receive Date: 20120611
  Receipt Date: 20120530
  Transmission Date: 20120825
  Serious: Yes (Disabling)
  Sender: FDA-Public Use
  Company Number: US-ELI_LILLY_AND_COMPANY-US201206000401

PATIENT
  Sex: Female

DRUGS (3)
  1. NOVOLIN N [Concomitant]
  2. LANTUS [Concomitant]
  3. HUMULIN R [Suspect]
     Indication: DIABETES MELLITUS
     Dosage: 75 U, PRN
     Dates: start: 19920101

REACTIONS (1)
  - MUSCULAR WEAKNESS [None]
